FAERS Safety Report 5041236-9 (Version None)
Quarter: 2006Q3

REPORT INFORMATION
  Report Type: 
  Country: None (occurrence: None)
  Receive Date: 20060703
  Receipt Date: 20060627
  Transmission Date: 20061208
  Serious: Yes (Hospitalization)
  Sender: FDA-Public Use
  Company Number: JP-JPN-A200602312

PATIENT
  Age: 94 Year
  Sex: Male

DRUGS (1)
  1. VALTREX [Suspect]
     Indication: HERPES ZOSTER
     Dosage: 2TAB THREE TIMES PER DAY
     Route: 048
     Dates: start: 20060624, end: 20060625

REACTIONS (3)
  - ANOREXIA [None]
  - SOMNOLENCE [None]
  - URINARY RETENTION [None]
